FAERS Safety Report 8506391 (Version 2)
Quarter: 2012Q4

REPORT INFORMATION
  Report Type: 
  Country: BR (occurrence: BR)
  Receive Date: 20120412
  Receipt Date: 20121031
  Transmission Date: 20130627
  Serious: Yes (Hospitalization, Other)
  Sender: FDA-Public Use
  Company Number: BR-ASTRAZENECA-2012SE22429

PATIENT
  Age: 53 Year
  Sex: Male
  Weight: 73 kg

DRUGS (6)
  1. CRESTOR [Suspect]
     Indication: BLOOD CHOLESTEROL INCREASED
     Route: 048
     Dates: start: 201110
  2. TORLOS [Concomitant]
     Route: 048
     Dates: start: 201110
  3. NATRILIX [Concomitant]
     Route: 048
     Dates: start: 201110
  4. ASPIRIN [Concomitant]
     Route: 048
     Dates: start: 201110
  5. CORDAPTIVE [Concomitant]
     Route: 048
     Dates: start: 201110
  6. CLOPIDOGREL [Concomitant]
     Indication: THROMBOSIS PROPHYLAXIS
     Route: 048
     Dates: start: 201110, end: 201204

REACTIONS (1)
  - Angina pectoris [Recovered/Resolved]
